FAERS Safety Report 8821211 (Version 1)
Quarter: 2012Q4

REPORT INFORMATION
  Report Type: 
  Country: US (occurrence: US)
  Receive Date: 20121002
  Receipt Date: 20121002
  Transmission Date: 20130627
  Serious: Yes (Death)
  Sender: FDA-Public Use
  Company Number: US-ROCHE-1131368

PATIENT
  Sex: Female

DRUGS (6)
  1. RITUXAN [Suspect]
     Indication: HODGKIN^S DISEASE
     Route: 065
     Dates: start: 20011004
  2. RITUXAN [Suspect]
     Indication: OFF LABEL USE
     Route: 065
     Dates: start: 20011009
  3. RITUXAN [Suspect]
     Route: 065
     Dates: start: 20011017
  4. RITUXAN [Suspect]
     Route: 065
     Dates: start: 20011021
  5. RITUXAN [Suspect]
     Route: 065
     Dates: start: 20011021
  6. RITUXAN [Suspect]
     Route: 065
     Dates: start: 20020110

REACTIONS (1)
  - Death [Fatal]
